FAERS Safety Report 19950908 (Version 1)
Quarter: 2021Q4

REPORT INFORMATION
  Report Type: Report from Study
  Country: US (occurrence: US)
  Receive Date: 20211014
  Receipt Date: 20211014
  Transmission Date: 20220303
  Serious: Yes (Death, Life-Threatening, Other)
  Sender: FDA-Public Use
  Company Number: US-AMGEN-USACT2021145776

PATIENT
  Age: 13 Year
  Sex: Male
  Weight: 46.7 kg

DRUGS (2)
  1. BLINATUMOMAB [Suspect]
     Active Substance: BLINATUMOMAB
     Indication: B precursor type acute leukaemia
     Dosage: 15 MICROGRAM/SQ. METER, QD (TOTAL DOSE: 1204 MCG)
     Route: 042
  2. METHOTREXATE [Suspect]
     Active Substance: METHOTREXATE
     Indication: B precursor type acute leukaemia
     Dosage: UNK (TOTAL DOSE: 15 MG)
     Route: 037

REACTIONS (2)
  - Haemorrhage intracranial [Unknown]
  - Brain oedema [Fatal]

NARRATIVE: CASE EVENT DATE: 20210714
